FAERS Safety Report 25654595 (Version 1)
Quarter: 2025Q3

REPORT INFORMATION
  Report Type: Spontaneous
  Country: US (occurrence: None)
  Receive Date: 20250806
  Receipt Date: 20250806
  Transmission Date: 20251020
  Serious: Yes (Other)
  Sender: FDA-CTU
  Company Number: None

PATIENT
  Age: 31 Year
  Sex: Female

DRUGS (8)
  1. DESCOVY [Suspect]
     Active Substance: EMTRICITABINE\TENOFOVIR ALAFENAMIDE FUMARATE
     Indication: Prophylaxis against HIV infection
     Route: 048
     Dates: start: 20250203
  2. ESTRADIOL [Concomitant]
     Active Substance: ESTRADIOL
     Dates: start: 20250203
  3. FINASTERIDE [Concomitant]
     Active Substance: FINASTERIDE
     Dates: start: 20250203
  4. PROGESTERONE [Concomitant]
     Active Substance: PROGESTERONE
     Dates: start: 20250203
  5. SPIRONOLACTONE [Concomitant]
     Active Substance: SPIRONOLACTONE
     Dates: start: 20250203
  6. WELLBUTRIN XL [Concomitant]
     Active Substance: BUPROPION HYDROCHLORIDE
     Dates: start: 20250203
  7. VITAMIN B12 [Concomitant]
     Active Substance: CYANOCOBALAMIN
     Dates: start: 20250203
  8. VITMIN D 100 UNITS [Concomitant]
     Dates: start: 20250203

REACTIONS (6)
  - Poor quality sleep [None]
  - Middle insomnia [None]
  - Micturition urgency [None]
  - Diarrhoea [None]
  - Nausea [None]
  - Abdominal pain upper [None]

NARRATIVE: CASE EVENT DATE: 20250203
